FAERS Safety Report 6388437-5 (Version None)
Quarter: 2009Q4

REPORT INFORMATION
  Report Type: 
  Country: None (occurrence: None)
  Receive Date: 20091001
  Receipt Date: 20091001
  Transmission Date: 20100525
  Serious: Yes (Death)
  Sender: FDA-Public Use
  Company Number: None

PATIENT
  Sex: Female
  Weight: 80.2867 kg

DRUGS (2)
  1. MELLARIL [Suspect]
     Indication: BIPOLAR DISORDER
     Dosage: 50 MG AND 200 MG 4PM ADN BEDTIME PO
     Route: 048
     Dates: start: 20080101, end: 20080619
  2. MELLARIL [Suspect]
     Indication: SEVERE MENTAL RETARDATION
     Dosage: 50 MG AND 200 MG 4PM ADN BEDTIME PO
     Route: 048
     Dates: start: 20080101, end: 20080619

REACTIONS (12)
  - ACCIDENTAL DEATH [None]
  - ASPIRATION [None]
  - BIPOLAR DISORDER [None]
  - CONTUSION [None]
  - DIABETES MELLITUS [None]
  - FALL [None]
  - INCONTINENCE [None]
  - MENTAL RETARDATION [None]
  - RIB FRACTURE [None]
  - UNRESPONSIVE TO STIMULI [None]
  - UPPER AIRWAY OBSTRUCTION [None]
  - WRIST FRACTURE [None]
